FAERS Safety Report 8971096 (Version 1)
Quarter: 2012Q4

REPORT INFORMATION
  Report Type: Report from Study
  Country: US (occurrence: US)
  Receive Date: 20121218
  Receipt Date: 20121218
  Transmission Date: 20130627
  Serious: Yes (Hospitalization, Other)
  Sender: FDA-Public Use
  Company Number: US-US-EMD SERONO, INC.-7181611

PATIENT
  Sex: Male
  Weight: 86 kg

DRUGS (3)
  1. REBIF [Suspect]
     Indication: PRODUCT USED FOR UNKNOWN INDICATION
     Route: 058
     Dates: start: 20031204
  2. VITAMIN D [Concomitant]
     Indication: SUPPLEMENTATION THERAPY
  3. CALCIUM [Concomitant]
     Indication: SUPPLEMENTATION THERAPY

REACTIONS (5)
  - Hip arthroplasty [Unknown]
  - Varicose vein [Unknown]
  - Injection site urticaria [Not Recovered/Not Resolved]
  - Injection site induration [Not Recovered/Not Resolved]
  - Injection site erythema [Not Recovered/Not Resolved]
